FAERS Safety Report 8106226-8 (Version None)
Quarter: 2012Q1

REPORT INFORMATION
  Report Type: 
  Country: None (occurrence: None)
  Receive Date: 20120130
  Receipt Date: 20120123
  Transmission Date: 20120608
  Serious: Yes (Other)
  Sender: FDA-Public Use
  Company Number: 129011

PATIENT
  Sex: Female

DRUGS (1)
  1. METHOTREXATE [Suspect]
     Dosage: 25MG SUBCUTANEOUSLY EVERY 1 TO 4 WEEKS
     Route: 058
     Dates: start: 20100101

REACTIONS (2)
  - MEDICATION ERROR [None]
  - WRONG TECHNIQUE IN DRUG USAGE PROCESS [None]
